FAERS Safety Report 22244708 (Version 5)
Quarter: 2024Q2

REPORT INFORMATION
  Report Type: Report from Study
  Country: US (occurrence: US)
  Receive Date: 20230424
  Receipt Date: 20240425
  Transmission Date: 20240716
  Serious: No
  Sender: FDA-Public Use
  Company Number: US-002147023-NVSC2023US090646

PATIENT
  Sex: Female

DRUGS (1)
  1. KESIMPTA [Suspect]
     Active Substance: OFATUMUMAB
     Indication: Multiple sclerosis
     Dosage: 20 MG, QMO
     Route: 058

REACTIONS (6)
  - Nystagmus [Not Recovered/Not Resolved]
  - Discomfort [Unknown]
  - Hypokinesia [Unknown]
  - Micturition disorder [Unknown]
  - Abdominal pain upper [Unknown]
  - Therapeutic response shortened [Unknown]
